FAERS Safety Report 24315349 (Version 1)
Quarter: 2024Q3

REPORT INFORMATION
  Report Type: Spontaneous
  Country: US (occurrence: US)
  Receive Date: 20240913
  Receipt Date: 20240913
  Transmission Date: 20241016
  Serious: No
  Sender: ALVOGEN
  Company Number: None

PATIENT

DRUGS (2)
  1. LISDEXAMFETAMINE [Suspect]
     Active Substance: LISDEXAMFETAMINE
     Indication: Product used for unknown indication
     Dosage: SWITCHED TO GENERIC.
     Dates: start: 202309
  2. LISDEXAMFETAMINE [Suspect]
     Active Substance: LISDEXAMFETAMINE
     Indication: Product used for unknown indication
     Dosage: UPPED THE DOSE.

REACTIONS (5)
  - Frustration tolerance decreased [Unknown]
  - Job dissatisfaction [Unknown]
  - Disturbance in attention [Unknown]
  - Product substitution issue [Unknown]
  - Therapeutic response decreased [Unknown]
